FAERS Safety Report 8921104 (Version 1)
Quarter: 2012Q4

REPORT INFORMATION
  Report Type: Report from Study
  Country: DE (occurrence: DE)
  Receive Date: 20121121
  Receipt Date: 20121121
  Transmission Date: 20130627
  Serious: Yes (Hospitalization)
  Sender: FDA-Public Use
  Company Number: DE-ABBOTT-12P-062-1007693-00

PATIENT
  Age: 68 Year
  Sex: Female
  Weight: 65 kg

DRUGS (7)
  1. HUMIRA [Suspect]
     Indication: RHEUMATOID ARTHRITIS
     Route: 058
     Dates: start: 200904, end: 201209
  2. ATACAND [Concomitant]
     Indication: HYPERTENSION
     Dosage: 8 mg daily
     Dates: start: 1994
  3. METEX [Concomitant]
     Indication: RHEUMATOID ARTHRITIS
     Route: 048
     Dates: start: 2007, end: 201209
  4. L-THYROXINE [Concomitant]
     Indication: PRODUCT USED FOR UNKNOWN INDICATION
     Dates: start: 1996
  5. FOLIC ACID [Concomitant]
     Indication: PRODUCT USED FOR UNKNOWN INDICATION
  6. AMARYL [Concomitant]
     Indication: DIABETES MELLITUS
     Dosage: 3 mg daily
  7. BYDUREON [Concomitant]
     Indication: DIABETES MELLITUS
     Dosage: 2 mg daily

REACTIONS (2)
  - Radius fracture [Recovering/Resolving]
  - Fall [Recovering/Resolving]
